FAERS Safety Report 6701896-0 (Version None)
Quarter: 2010Q2

REPORT INFORMATION
  Report Type: 
  Country: None (occurrence: None)
  Receive Date: 20100429
  Receipt Date: 20100419
  Transmission Date: 20101027
  Serious: Yes (Hospitalization, Other)
  Sender: FDA-Public Use
  Company Number: US-PFIZER INC-2010050448

PATIENT

DRUGS (3)
  1. ZOLOFT [Suspect]
     Dosage: UNK
  2. CELEBREX [Suspect]
     Dosage: UNK
  3. STRATTERA [Suspect]
     Dosage: UNK

REACTIONS (2)
  - DERMATITIS EXFOLIATIVE [None]
  - JAUNDICE [None]
